FAERS Safety Report 8822330 (Version 1)
Quarter: 2012Q4

REPORT INFORMATION
  Report Type: 
  Country: BR (occurrence: BR)
  Receive Date: 20121003
  Receipt Date: 20121003
  Transmission Date: 20130627
  Serious: Yes (Death, Other)
  Sender: FDA-Public Use
  Company Number: BR-AMGEN-BRASP2012062053

PATIENT
  Age: 67 Year
  Sex: Female
  Weight: 55 kg

DRUGS (3)
  1. ENBREL [Suspect]
     Indication: RHEUMATOID ARTHRITIS
     Dosage: 50 mg, once weekly
     Route: 058
     Dates: start: 201202
  2. ANGIPRESS                          /00422901/ [Concomitant]
     Indication: BLOOD PRESSURE
     Dosage: UNK
  3. METHOTREXATE [Concomitant]
     Dosage: 5 tablets of an unspecified dose, once weekly

REACTIONS (3)
  - Infarction [Fatal]
  - Thyroid disorder [Unknown]
  - Diarrhoea [Unknown]
